FAERS Safety Report 9305264 (Version 1)
Quarter: 2013Q2

REPORT INFORMATION
  Report Type: Spontaneous
  Country: US (occurrence: None)
  Receive Date: 20130520
  Receipt Date: 20130520
  Transmission Date: 20140414
  Serious: No
  Sender: FDA-Public Use
  Company Number: 2013-00094

PATIENT
  Age: 25 Year
  Sex: Female
  Weight: 48.99 kg

DRUGS (4)
  1. ZICAM COLD REMEDY ORAL MIST [Suspect]
     Indication: SINUS CONGESTION
     Dosage: 4-5 SPRAYS ORALLY EVERY 3 HOURS
     Route: 048
     Dates: start: 20130508
  2. ZICAM COLD REMEDY ORAL MIST [Suspect]
     Indication: OROPHARYNGEAL PAIN
     Dosage: 4-5 SPRAYS ORALLY EVERY 3 HOURS
     Route: 048
     Dates: start: 20130508
  3. LYRICA [Concomitant]
  4. BACLOFEN [Concomitant]

REACTIONS (1)
  - Ageusia [None]
